FAERS Safety Report 8420151-4 (Version None)
Quarter: 2012Q2

REPORT INFORMATION
  Report Type: 
  Country: None (occurrence: None)
  Receive Date: 20120607
  Receipt Date: 20120604
  Transmission Date: 20120825
  Serious: Yes (Other)
  Sender: FDA-Public Use
  Company Number: TR-BAXTER-2012BAX007580

PATIENT
  Age: 8 Year
  Sex: Female

DRUGS (8)
  1. VINCRISTINE [Suspect]
  2. METHOTREXATE [Suspect]
  3. CYCLOPHOSPHAMIDE [Suspect]
  4. ELSPAR [Suspect]
  5. CYTARABINE [Suspect]
  6. PREDNISONE TAB [Suspect]
  7. MERCAPTOPURINE [Suspect]
  8. DOXORUBICIN HCL [Suspect]

REACTIONS (1)
  - MUCOEPIDERMOID CARCINOMA [None]
